FAERS Safety Report 8081719-0 (Version None)
Quarter: 2012Q1

REPORT INFORMATION
  Report Type: 
  Country: None (occurrence: None)
  Receive Date: 20120130
  Receipt Date: 20120123
  Transmission Date: 20120608
  Serious: Yes (Hospitalization)
  Sender: FDA-Public Use
  Company Number: SK-PFIZER INC-2009300537

PATIENT
  Age: 90 Year
  Sex: Male
  Weight: 58.2 kg

DRUGS (10)
  1. SUNITINIB MALATE [Suspect]
     Indication: PROSTATE CANCER
     Dosage: 37.5 MG, 1X/DAY
     Route: 048
     Dates: start: 20090921, end: 20091115
  2. ACETYLSALICYLIC ACID [Concomitant]
     Dosage: UNK
     Dates: start: 20010101
  3. CALCIUM CARBONATE [Concomitant]
     Dosage: UNK
     Dates: start: 20080401
  4. TRIMETAZIDINE [Concomitant]
     Dosage: UNK
     Dates: start: 20010101
  5. MOLSIDOMINE [Concomitant]
     Dosage: UNK
     Dates: start: 20010101
  6. ZOLEDRONIC ACID [Concomitant]
     Dosage: UNK
     Dates: start: 20080101
  7. RAMIPRIL [Concomitant]
     Dosage: UNK
     Dates: start: 20010101
  8. AMLODIPINE BESILATE [Concomitant]
     Dosage: UNK
     Dates: start: 20010101
  9. ATORVASTATIN CALCIUM [Concomitant]
     Dosage: UNK
     Dates: start: 20090924
  10. PREDNISONE [Suspect]
     Indication: PROSTATE CANCER
     Dosage: 5 MG, 2X/DAY
     Route: 048
     Dates: start: 20090921, end: 20091115

REACTIONS (1)
  - GASTRIC ULCER [None]
